FAERS Safety Report 9014039 (Version 2)
Quarter: 2014Q2

REPORT INFORMATION
  Report Type: Report from Study
  Country: US (occurrence: US)
  Receive Date: 20130115
  Receipt Date: 20140419
  Transmission Date: 20141212
  Serious: Yes (Other)
  Sender: FDA-Public Use
  Company Number: US-ROCHE-1178777

PATIENT
  Sex: Male
  Weight: 77.18 kg

DRUGS (3)
  1. CELLCEPT [Suspect]
     Indication: SYSTEMIC LUPUS ERYTHEMATOSUS
     Route: 048
  2. HYDROXYCHLOROQUINE [Concomitant]
  3. PREDNISONE [Concomitant]

REACTIONS (1)
  - Radiculopathy [Unknown]
